FAERS Safety Report 18399199 (Version 1)
Quarter: 2020Q4

REPORT INFORMATION
  Report Type: Spontaneous
  Country: CN (occurrence: CN)
  Receive Date: 20201019
  Receipt Date: 20201019
  Transmission Date: 20210114
  Serious: Yes (Hospitalization, Other)
  Sender: FDA-Public Use
  Company Number: CN-GLAXOSMITHKLINE-CN2020APC202573

PATIENT
  Age: 27 Year
  Sex: Female

DRUGS (7)
  1. ZINACEF [Suspect]
     Active Substance: CEFUROXIME SODIUM
     Indication: INFECTION PROPHYLAXIS
     Dosage: 1.5 G, QD
     Dates: start: 20200923, end: 20200923
  2. DEXAMETHASONE. [Suspect]
     Active Substance: DEXAMETHASONE
     Indication: SEDATION
     Dosage: 10 MG
     Route: 042
  3. HYDROCORTISONE. [Suspect]
     Active Substance: HYDROCORTISONE
     Indication: SEDATION
     Dosage: 200 MG
  4. EPINEPHRINE. [Suspect]
     Active Substance: EPINEPHRINE
     Indication: PRODUCT USED FOR UNKNOWN INDICATION
     Dosage: UNK
     Route: 058
  5. MIDAZOLAM. [Suspect]
     Active Substance: MIDAZOLAM
     Indication: SEDATION
     Dosage: 2 MG
  6. SODIUM CHLORIDE 0.9% [Suspect]
     Active Substance: SODIUM CHLORIDE
     Indication: VEHICLE SOLUTION USE
     Dosage: 100 ML
     Route: 042
  7. PHLOROGLUCINOL [Suspect]
     Active Substance: PHLOROGLUCINOL
     Indication: INFECTION PROPHYLAXIS
     Dosage: 40 MG, QD
     Route: 042
     Dates: start: 20200923, end: 20200923

REACTIONS (9)
  - Drug hypersensitivity [Recovering/Resolving]
  - Heart rate increased [Recovering/Resolving]
  - Peripheral coldness [Recovering/Resolving]
  - Heart rate abnormal [Unknown]
  - Seizure [Recovering/Resolving]
  - Blood pressure decreased [Recovering/Resolving]
  - Rash [Recovering/Resolving]
  - Blood pressure fluctuation [Recovering/Resolving]
  - Headache [Recovering/Resolving]

NARRATIVE: CASE EVENT DATE: 20200923
